FAERS Safety Report 4325731-3 (Version None)
Quarter: 2004Q1

REPORT INFORMATION
  Report Type: 
  Country: None (occurrence: None)
  Receive Date: 20040324
  Receipt Date: 20040312
  Transmission Date: 20041129
  Serious: No
  Sender: FDA-Public Use
  Company Number: US-JNJFOC-20031005601

PATIENT
  Age: 75 Year
  Sex: Female
  Weight: 51.7101 kg

DRUGS (22)
  1. REMICADE [Suspect]
     Indication: RHEUMATOID ARTHRITIS
     Dosage: 2 VIALS
     Dates: start: 20030411
  2. REMICADE [Suspect]
     Indication: RHEUMATOID ARTHRITIS
     Dosage: 2 VIALS
     Dates: start: 20030509
  3. REMICADE [Suspect]
     Indication: RHEUMATOID ARTHRITIS
     Dosage: 2 VIALS
     Dates: start: 20030626
  4. REMICADE [Suspect]
     Indication: RHEUMATOID ARTHRITIS
     Dosage: 2 VIALS
     Dates: start: 20030822
  5. REMICADE [Suspect]
     Indication: RHEUMATOID ARTHRITIS
     Dosage: 2 VIALS
     Dates: start: 20031017
  6. REMICADE [Suspect]
     Indication: RHEUMATOID ARTHRITIS
     Dosage: 2 VIALS
     Dates: start: 20040123
  7. COUMADIN [Suspect]
  8. ACTONEL [Concomitant]
  9. LASIX [Concomitant]
  10. ACCUPRIL [Concomitant]
  11. PREDNISONE [Concomitant]
  12. SINGULAR (MONTELUKAS SODIUM) [Concomitant]
  13. ULTRACET (HYDROTALCITE) [Concomitant]
  14. DUONEB (MEDIHALER-DUO) [Concomitant]
  15. TYLENOL [Concomitant]
  16. ALBUTEROL [Concomitant]
  17. ATROVENT [Concomitant]
  18. CALTRATE (CALCIUM CARBONATE) [Concomitant]
  19. VITAMIN D [Concomitant]
  20. PREVACID [Concomitant]
  21. METHOTREXATE [Concomitant]
  22. LOTREL (LOTREL) [Concomitant]

REACTIONS (2)
  - CHILLS [None]
  - EPISTAXIS [None]
